FAERS Safety Report 6292752-3 (Version None)
Quarter: 2009Q3

REPORT INFORMATION
  Report Type: 
  Country: None (occurrence: None)
  Receive Date: 20090731
  Receipt Date: 20090724
  Transmission Date: 20100115
  Serious: Yes (Other)
  Sender: FDA-Public Use
  Company Number: B0576205A

PATIENT
  Sex: Female
  Weight: 64 kg

DRUGS (4)
  1. ZINACEF [Suspect]
     Dosage: 1500MG TWICE PER DAY
     Route: 042
     Dates: start: 20090505, end: 20090507
  2. HYDROXYZINE [Concomitant]
     Dosage: 20MG PER DAY
  3. METAMIZOL SODIUM [Concomitant]
     Dosage: 5ML TWICE PER DAY
  4. UNKNOWN DRUG [Concomitant]
     Route: 042

REACTIONS (5)
  - BLOOD PRESSURE INCREASED [None]
  - DYSGEUSIA [None]
  - DYSPNOEA [None]
  - FEELING HOT [None]
  - PRODUCT QUALITY ISSUE [None]
